FAERS Safety Report 10555708 (Version 1)
Quarter: 2014Q4

REPORT INFORMATION
  Report Type: Report from Study
  Country: BR (occurrence: BR)
  Receive Date: 20141030
  Receipt Date: 20141030
  Transmission Date: 20150529
  Serious: Yes (Hospitalization, Other)
  Sender: FDA-Public Use
  Company Number: BR-ABBVIE-14P-020-1299625-00

PATIENT
  Age: 33 Year
  Sex: Female
  Weight: 74 kg

DRUGS (3)
  1. SULFASALAZINE. [Concomitant]
     Active Substance: SULFASALAZINE
     Indication: ARTHRITIS
     Route: 048
     Dates: start: 201405
  2. HUMIRA [Suspect]
     Active Substance: ADALIMUMAB
     Indication: RHEUMATOID ARTHRITIS
     Route: 058
     Dates: start: 2011
  3. MULTIVITAMIN (OGESTAN PLUS) [Concomitant]
     Indication: VITAMIN SUPPLEMENTATION
     Route: 048

REACTIONS (11)
  - Thrombosis [Unknown]
  - Labyrinthitis [Unknown]
  - Joint injury [Recovering/Resolving]
  - Labyrinthitis [Recovered/Resolved]
  - Syncope [Recovering/Resolving]
  - Dizziness [Recovering/Resolving]
  - Groin pain [Recovered/Resolved]
  - Gastric disorder [Unknown]
  - Fertility increased [Unknown]
  - Pain in extremity [Recovered/Resolved]
  - Injection site pain [Recovered/Resolved]

NARRATIVE: CASE EVENT DATE: 201310
